FAERS Safety Report 6329358-3 (Version None)
Quarter: 2009Q3

REPORT INFORMATION
  Report Type: 
  Country: None (occurrence: None)
  Receive Date: 20090826
  Receipt Date: 20090820
  Transmission Date: 20100115
  Serious: Yes (Death, Hospitalization, Other)
  Sender: FDA-Public Use
  Company Number: JP-JNJFOC-20090402706

PATIENT
  Sex: Male
  Weight: 60 kg

DRUGS (23)
  1. LEUSTATIN [Suspect]
     Route: 041
  2. LEUSTATIN [Suspect]
     Route: 041
  3. LEUSTATIN [Suspect]
     Route: 041
  4. LEUSTATIN [Suspect]
     Indication: MANTLE CELL LYMPHOMA
     Route: 041
  5. RITUXAN [Concomitant]
     Route: 041
  6. RITUXAN [Concomitant]
     Route: 041
  7. RITUXAN [Concomitant]
     Route: 041
  8. RITUXAN [Concomitant]
     Route: 041
  9. RITUXAN [Concomitant]
     Indication: MANTLE CELL LYMPHOMA
     Route: 041
  10. NOVANTRONE [Concomitant]
     Route: 041
  11. NOVANTRONE [Concomitant]
     Indication: MANTLE CELL LYMPHOMA
     Route: 041
  12. DECADRON [Concomitant]
     Route: 041
  13. DECADRON [Concomitant]
     Route: 041
  14. DECADRON [Concomitant]
     Route: 041
  15. DECADRON [Concomitant]
     Indication: MANTLE CELL LYMPHOMA
     Route: 041
  16. GASTER D [Concomitant]
     Indication: PROPHYLAXIS AGAINST GASTROINTESTINAL ULCER
     Route: 048
  17. MUCOSTA [Concomitant]
     Indication: PROPHYLAXIS AGAINST GASTROINTESTINAL ULCER
     Route: 048
  18. LEVOFLOXACIN [Concomitant]
     Indication: INFECTION PROPHYLAXIS
     Route: 048
  19. MIYA BM [Concomitant]
     Indication: PROPHYLAXIS AGAINST GASTROINTESTINAL ULCER
     Route: 048
  20. DIFLUCAN [Concomitant]
     Indication: ANTIFUNGAL PROPHYLAXIS
     Route: 048
  21. BAKTAR [Concomitant]
     Indication: ANTIFUNGAL PROPHYLAXIS
     Route: 048
  22. ZYLORIC [Concomitant]
     Indication: HYPERURICAEMIA
     Route: 048
  23. METHYCOBAL [Concomitant]
     Indication: NEUROPATHY PERIPHERAL
     Route: 048

REACTIONS (7)
  - ANAEMIA [None]
  - HYPOALBUMINAEMIA [None]
  - HYPOPROTEINAEMIA [None]
  - LYMPHOCYTE COUNT DECREASED [None]
  - MANTLE CELL LYMPHOMA [None]
  - PLATELET COUNT DECREASED [None]
  - WHITE BLOOD CELL COUNT DECREASED [None]
